FAERS Safety Report 4523631-7 (Version None)
Quarter: 2004Q4

REPORT INFORMATION
  Report Type: 
  Country: None (occurrence: None)
  Receive Date: 20041208
  Receipt Date: 20041124
  Transmission Date: 20050328
  Serious: Yes (Death)
  Sender: FDA-Public Use
  Company Number: MC200400851

PATIENT
  Age: 74 Year
  Sex: Female

DRUGS (1)
  1. ANGIOMAX [Suspect]
     Dates: start: 20041124

REACTIONS (4)
  - EXSANGUINATION [None]
  - HAEMODIALYSIS [None]
  - POST PROCEDURAL COMPLICATION [None]
  - POST PROCEDURAL HAEMORRHAGE [None]
